FAERS Safety Report 9964144 (Version 1)
Quarter: 2014Q1

REPORT INFORMATION
  Report Type: Spontaneous
  Country: US (occurrence: US)
  Receive Date: 20140305
  Receipt Date: 20140305
  Transmission Date: 20141002
  Serious: Yes (Hospitalization)
  Sender: FDA-Public Use
  Company Number: US-BAXTER-2014BAX009576

PATIENT
  Sex: Male
  Weight: 60 kg

DRUGS (1)
  1. FEIBA NF [Suspect]
     Indication: PROPHYLAXIS
     Route: 042

REACTIONS (2)
  - Cardiac failure congestive [Unknown]
  - Pneumonia [Unknown]
